FAERS Safety Report 21283225 (Version 1)
Quarter: 2022Q3

REPORT INFORMATION
  Report Type: Spontaneous
  Country: US (occurrence: US)
  Receive Date: 20220901
  Receipt Date: 20220901
  Transmission Date: 20221026
  Serious: No
  Sender: FDA-Public Use
  Company Number: US-SUNOVION-2022SUN002598AA

PATIENT
  Sex: Female

DRUGS (1)
  1. LATUDA [Suspect]
     Active Substance: LURASIDONE HYDROCHLORIDE
     Indication: Suicidal ideation
     Dosage: UNK
     Route: 048

REACTIONS (18)
  - Lethargy [Unknown]
  - Feeling abnormal [Unknown]
  - Night sweats [Unknown]
  - Cold sweat [Unknown]
  - Headache [Unknown]
  - Feeling hot [Unknown]
  - Frustration tolerance decreased [Unknown]
  - Withdrawal syndrome [Unknown]
  - Migraine [Unknown]
  - Chills [Unknown]
  - Decreased activity [Unknown]
  - Reading disorder [Unknown]
  - Emotional disorder [Unknown]
  - Depressed mood [Unknown]
  - Nausea [Unknown]
  - Fatigue [Unknown]
  - Agitation [Unknown]
  - Off label use [Unknown]
